FAERS Safety Report 5426005-X (Version None)
Quarter: 2007Q3

REPORT INFORMATION
  Report Type: 
  Country: None (occurrence: None)
  Receive Date: 20070823
  Receipt Date: 20070823
  Transmission Date: 20080115
  Serious: Yes (Other)
  Sender: FDA-Public Use
  Company Number: None

PATIENT
  Age: 86 Year
  Sex: Female
  Weight: 68.0396 kg

DRUGS (2)
  1. DETROL LA [Suspect]
     Indication: BLADDER SPASM
     Dosage: 4MG 1 DAILY PO
     Route: 048
     Dates: start: 20041216
  2. OXYBUTYNIN 15 MG [Suspect]
     Indication: STRESS URINARY INCONTINENCE
     Dosage: 15 MG 1 DAILY PO
     Route: 048
     Dates: start: 20050928

REACTIONS (3)
  - DRUG INEFFECTIVE [None]
  - PHARMACEUTICAL PRODUCT COMPLAINT [None]
  - URINARY INCONTINENCE [None]
